FAERS Safety Report 17088253 (Version 4)
Quarter: 2020Q2

REPORT INFORMATION
  Report Type: Spontaneous
  Country: US (occurrence: US)
  Receive Date: 20191128
  Receipt Date: 20200504
  Transmission Date: 20200713
  Serious: Yes (Death, Hospitalization, Other)
  Sender: FDA-Public Use
  Company Number: US-PFIZER INC-2019512266

PATIENT
  Age: 49 Year
  Sex: Female

DRUGS (1)
  1. GENOTROPIN [Suspect]
     Active Substance: SOMATROPIN
     Indication: HORMONE LEVEL ABNORMAL
     Dosage: 0.4 MG, DAILY
     Dates: start: 20180913

REACTIONS (6)
  - Pneumonia [Unknown]
  - Pulmonary haemorrhage [Unknown]
  - Leukaemia [Unknown]
  - Death [Fatal]
  - Infection [Unknown]
  - Bone cancer [Unknown]

NARRATIVE: CASE EVENT DATE: 201908
